FAERS Safety Report 8819296 (Version 1)
Quarter: 2012Q4

REPORT INFORMATION
  Report Type: Spontaneous
  Country: DK (occurrence: None)
  Receive Date: 20121003
  Receipt Date: 20121003
  Transmission Date: 20130627
  Serious: Yes (Other)
  Sender: FDA-Public Use
  Company Number: 2012MA011868

PATIENT
  Age: 79 Year
  Sex: Male

DRUGS (7)
  1. MICONAZOLE NITRATE [Suspect]
     Indication: FOOT INFECTION
  2. ACENOCOUMAROL [Suspect]
     Indication: ANTICOAGULANT THERAPY
  3. OMEPRAZOLE [Concomitant]
  4. TRANSULOSIN [Concomitant]
  5. AVODART [Concomitant]
  6. GALANTAMINE [Concomitant]
  7. PERSANTIN [Concomitant]

REACTIONS (2)
  - Thrombosis [None]
  - Drug interaction [None]
